FAERS Safety Report 5253054-7 (Version None)
Quarter: 2007Q1

REPORT INFORMATION
  Report Type: 
  Country: None (occurrence: None)
  Receive Date: 20061201
  Receipt Date: 20060802
  Transmission Date: 20070707
  Serious: No
  Sender: FDA-Public Use
  Company Number: 2006PV018723

PATIENT
  Age: 63 Year
  Sex: Female
  Weight: 102.0593 kg

DRUGS (5)
  1. BYETTA [Suspect]
     Indication: DIABETES MELLITUS NON-INSULIN-DEPENDENT
     Dosage: 10 MCG;BID;SC : 5 MCG;BID;SC
     Route: 058
     Dates: start: 20060614, end: 20060713
  2. BYETTA [Suspect]
     Indication: DIABETES MELLITUS NON-INSULIN-DEPENDENT
     Dosage: 10 MCG;BID;SC : 5 MCG;BID;SC
     Route: 058
     Dates: start: 20060714
  3. VITAMIN B [Suspect]
     Indication: DRUG USE FOR UNKNOWN INDICATION
  4. GLYBURIDE [Concomitant]
  5. GLUCOPHAGE [Concomitant]

REACTIONS (5)
  - AMNESIA [None]
  - HEADACHE [None]
  - MEDICATION ERROR [None]
  - NAUSEA [None]
  - VOMITING [None]
